FAERS Safety Report 22868031 (Version 6)
Quarter: 2023Q4

REPORT INFORMATION
  Report Type: Report from Study
  Country: CN (occurrence: CN)
  Receive Date: 20230825
  Receipt Date: 20231109
  Transmission Date: 20240110
  Serious: Yes (Death, Hospitalization)
  Sender: FDA-Public Use
  Company Number: CN-PFIZER INC-202300220573

PATIENT
  Age: 56 Year
  Sex: Male
  Weight: 58 kg

DRUGS (16)
  1. ELRANATAMAB [Suspect]
     Active Substance: ELRANATAMAB
     Indication: Plasma cell myeloma
     Dosage: 76 MG, EVERY WEEK
     Route: 058
     Dates: start: 20230526, end: 20230608
  2. DARATUMUMAB [Suspect]
     Active Substance: DARATUMUMAB
     Indication: Plasma cell myeloma
     Dosage: 1800 MG, EVERY WEEK
     Route: 058
     Dates: start: 20230608, end: 20230608
  3. FLUCONAZOLE [Concomitant]
     Active Substance: FLUCONAZOLE
     Indication: Antifungal prophylaxis
     Dosage: 400 MG, 1X/DAY
     Route: 048
     Dates: start: 20230526
  4. FAMCICLOVIR [Concomitant]
     Active Substance: FAMCICLOVIR
     Indication: Antiviral prophylaxis
     Dosage: 0.25 G, 3X/DAY
     Route: 048
     Dates: start: 20230526
  5. SULFAMETHOXAZOLE\TRIMETHOPRIM [Concomitant]
     Active Substance: SULFAMETHOXAZOLE\TRIMETHOPRIM
     Indication: Antifungal prophylaxis
     Dosage: 1 PATCH, 3 TIMES PER WEEK
     Route: 048
     Dates: start: 20230526
  6. CEFUROXIME AXETIL [Concomitant]
     Active Substance: CEFUROXIME AXETIL
     Indication: Antibiotic prophylaxis
     Dosage: 0.25 G, 2X/DAY
     Route: 048
     Dates: start: 20230526
  7. GLIMEPIRIDE [Concomitant]
     Active Substance: GLIMEPIRIDE
     Indication: Diabetes mellitus
     Dosage: 5 MG, 1X/DAY
     Route: 048
     Dates: start: 202210
  8. DAPAGLIFLOZIN [Concomitant]
     Active Substance: DAPAGLIFLOZIN
     Indication: Diabetes mellitus
     Dosage: 10 MG, 1X/DAY
     Route: 048
     Dates: start: 202210
  9. INSULIN HUMAN [Concomitant]
     Active Substance: INSULIN HUMAN
     Indication: Blood glucose increased
     Dosage: 2 IU, 1X/DAY
     Route: 042
     Dates: start: 20230526, end: 20230530
  10. INSULIN HUMAN [Concomitant]
     Active Substance: INSULIN HUMAN
     Dosage: 4 IU, 2X/DAY
     Route: 042
     Dates: start: 20230526, end: 20230530
  11. SODIUM BICARBONATE [Concomitant]
     Active Substance: SODIUM BICARBONATE
     Indication: Prophylaxis
     Dosage: 40 ML, 2X/DAY
     Route: 042
     Dates: start: 20230526, end: 20230530
  12. DIISOPROPYLAMINE DICHLOROACETATE/GLUCONATE SODIUM [Concomitant]
     Indication: Prophylaxis
     Dosage: 40 MG, 1X/DAY
     Route: 042
     Dates: start: 20230526, end: 20230530
  13. COMPOUND CHLORHEXIDINE GARGLE [Concomitant]
     Indication: Infection prophylaxis
     Dosage: 10 ML, CONTINUOUS
     Route: 048
     Dates: start: 20230527, end: 20230530
  14. DEXTROSE [Concomitant]
     Active Substance: DEXTROSE\DEXTROSE MONOHYDRATE
     Indication: Prophylaxis
     Dosage: 500 ML, 2X/DAY
     Route: 042
     Dates: start: 20230526, end: 20230530
  15. DEXTROSE [Concomitant]
     Active Substance: DEXTROSE\DEXTROSE MONOHYDRATE
     Dosage: 250 ML, 1X/DAY
     Route: 042
     Dates: start: 20230526, end: 20230530
  16. POVIDONE-IODINE [Concomitant]
     Active Substance: POVIDONE-IODINE
     Indication: Infection prophylaxis
     Dosage: 1:1000 ML, 1X/DAY
     Route: 050
     Dates: start: 20230527, end: 20230530

REACTIONS (1)
  - Pneumonia viral [Fatal]

NARRATIVE: CASE EVENT DATE: 20230612
